FAERS Safety Report 24125273 (Version 1)
Quarter: 2024Q3

REPORT INFORMATION
  Report Type: Other
  Country: ES (occurrence: ES)
  Receive Date: 20240723
  Receipt Date: 20240723
  Transmission Date: 20241016
  Serious: Yes (Death, Hospitalization, Other)
  Sender: COREPHARMA
  Company Number: ES-CorePharma LLC-2159461

PATIENT
  Age: 54 Year
  Sex: Female

DRUGS (6)
  1. CLORAZEPATE DIPOTASSIUM [Suspect]
     Active Substance: CLORAZEPATE DIPOTASSIUM
     Indication: Product used for unknown indication
     Route: 065
  2. ACETAMINOPHEN [Suspect]
     Active Substance: ACETAMINOPHEN
     Route: 065
  3. DEXKETOPROFEN [Suspect]
     Active Substance: DEXKETOPROFEN
     Route: 065
  4. LORMETAZEPAM [Suspect]
     Active Substance: LORMETAZEPAM
     Route: 065
  5. AMOXICILLIN [Suspect]
     Active Substance: AMOXICILLIN
     Route: 065
  6. DICLOFENAC [Suspect]
     Active Substance: DICLOFENAC
     Route: 065

REACTIONS (10)
  - Shock [Fatal]
  - Toxicity to various agents [Fatal]
  - Laboratory test abnormal [Fatal]
  - Coagulopathy [Fatal]
  - Hyperglycaemia [Fatal]
  - Metabolic acidosis [Fatal]
  - Liver injury [Fatal]
  - Acute hepatic failure [Fatal]
  - Pancreatic failure [Fatal]
  - Renal failure [Fatal]
